FAERS Safety Report 15968151 (Version 1)
Quarter: 2019Q1

REPORT INFORMATION
  Report Type: Spontaneous
  Country: FR (occurrence: FR)
  Receive Date: 20190215
  Receipt Date: 20190215
  Transmission Date: 20190418
  Serious: Yes (Hospitalization)
  Sender: FDA-Public Use
  Company Number: FR-PFIZER INC-2019059649

PATIENT
  Age: 16 Year
  Sex: Female

DRUGS (4)
  1. MEDROL [Suspect]
     Active Substance: METHYLPREDNISOLONE
     Indication: SUICIDE ATTEMPT
     Dosage: 64 MG, SINGLE
     Route: 048
     Dates: start: 20181104, end: 20181104
  2. LOPERAMIDE HYDROCHLORIDE. [Suspect]
     Active Substance: LOPERAMIDE HYDROCHLORIDE
     Indication: SUICIDE ATTEMPT
     Dosage: 16 MG, SINGLE (9 TABLETS)
     Route: 048
     Dates: start: 20181104, end: 20181104
  3. SPASFON [PHLOROGLUCINOL] [Suspect]
     Active Substance: PHLOROGLUCINOL
     Indication: SUICIDE ATTEMPT
     Dosage: 2560 MG, SINGLE
     Route: 048
     Dates: start: 20181104, end: 20181104
  4. PARACETAMOL [Suspect]
     Active Substance: ACETAMINOPHEN
     Indication: SUICIDE ATTEMPT
     Dosage: 5 G, SINGLE
     Route: 048
     Dates: start: 20181104, end: 20181104

REACTIONS (3)
  - Suicide attempt [Recovered/Resolved]
  - Toxicity to various agents [Recovered/Resolved]
  - Vomiting [Recovered/Resolved]

NARRATIVE: CASE EVENT DATE: 20181104
